FAERS Safety Report 5325634-1 (Version None)
Quarter: 2007Q2

REPORT INFORMATION
  Report Type: 
  Country: None (occurrence: None)
  Receive Date: 20070515
  Receipt Date: 20070503
  Transmission Date: 20071010
  Serious: Yes (Other)
  Sender: FDA-Public Use
  Company Number: HU-PFIZER INC-2007034636

PATIENT
  Sex: Female

DRUGS (2)
  1. VARENICLINE TABLETS [Suspect]
     Indication: SMOKING CESSATION THERAPY
     Route: 048
     Dates: start: 20070421, end: 20070425
  2. ENALAPRIL [Concomitant]
     Route: 048

REACTIONS (2)
  - HEADACHE [None]
  - HYPERTENSION [None]
